FAERS Safety Report 16648464 (Version 2)
Quarter: 2019Q3

REPORT INFORMATION
  Report Type: Spontaneous
  Country: JP (occurrence: JP)
  Receive Date: 20190730
  Receipt Date: 20190806
  Transmission Date: 20191004
  Serious: No
  Sender: FDA-Public Use
  Company Number: JP-BEH-2019104740

PATIENT
  Age: 79 Year
  Sex: Male

DRUGS (1)
  1. FIBROGAMMIN P [Suspect]
     Active Substance: FACTOR XIII CONCENTRATE (HUMAN)
     Indication: SUBCUTANEOUS EMPHYSEMA
     Dosage: 6 VIALS/ 5 DAYS
     Route: 041
     Dates: start: 20190718

REACTIONS (4)
  - Product use in unapproved indication [Unknown]
  - Injection site swelling [Unknown]
  - Injection site extravasation [Unknown]
  - No adverse event [Unknown]

NARRATIVE: CASE EVENT DATE: 20190718
